FAERS Safety Report 26192685 (Version 1)
Quarter: 2025Q4

REPORT INFORMATION
  Report Type: Spontaneous
  Country: GB (occurrence: GB)
  Receive Date: 20251223
  Receipt Date: 20251223
  Transmission Date: 20260118
  Serious: Yes (Hospitalization, Other)
  Sender: MYLAN
  Company Number: GB-MHRA-MIDB-f9988db3-f60c-4734-9543-a8b2a54635a1

PATIENT
  Age: 62 Year
  Sex: Female

DRUGS (23)
  1. AMLODIPINE [Suspect]
     Active Substance: AMLODIPINE BESYLATE
     Indication: Product used for unknown indication
     Dosage: 10 MILLIGRAM, QD
  2. FLUDROCORTISONE [Suspect]
     Active Substance: FLUDROCORTISONE
     Indication: Product used for unknown indication
     Dosage: 100 MICROGRAM, QD (HALF A TABLET TO BE TAKEN EACH DAY)
  3. AZELASTINE [Concomitant]
     Active Substance: AZELASTINE
     Dosage: UNK
  4. ATORVASTATIN [Concomitant]
     Active Substance: ATORVASTATIN
     Dosage: 20 MILLIGRAM, PM (TO BE TAKEN EACH NIGHT)
  5. ARANESP [Concomitant]
     Active Substance: DARBEPOETIN ALFA
     Dosage: 80 MICROGRAM, Q2W (PRE-FILLED SYRINGES 80 MCG EVERY 14 DAYS AS PER TTO 30 / 06 / 25 0.01 PRE-FILLED DISPOSABLE INJECTION)
  6. CALCIUM CARBONATE\CHOLECALCIFEROL [Concomitant]
     Active Substance: CALCIUM CARBONATE\CHOLECALCIFEROL
     Dosage: 1 DOSAGE FORM, BID (1.5 G CHEWABLE TABLETS CHEW OR SUCK ONE TABLET TWICE A DAY)
     Route: 061
  7. OLIVE OIL [Concomitant]
     Active Substance: OLIVE OIL
     Dosage: UNK, BID (APPLY TO LEFT EAR TWICE A DAY FOR AT LEAST 10 DAYS 10 ML -)
  8. FLUTICASONE [Concomitant]
     Active Substance: FLUTICASONE
     Dosage: UNK
  9. CINNARIZINE [Concomitant]
     Active Substance: CINNARIZINE
     Dosage: 2 DOSAGE FORM, TID (15 MG TABLETS TWO TO BE TAKEN THREE TIMES A DAY 84 TABLET -NOT SURE)
  10. BETAHISTINE [Concomitant]
     Active Substance: BETAHISTINE
     Dosage: 1 DOSAGE FORM, TID (16 MG TABLETS TAKE ONE TABLET THREE TIMES A DAY 30 TABLET)
  11. ACETAMINOPHEN [Concomitant]
     Active Substance: ACETAMINOPHEN
     Dosage: 1 DOSAGE FORM (ONE TABLET TO BE TAKEN EVERY 4-6 HOURS UP TO FOUR TIMES A DAY)
  12. DERMOL [Concomitant]
     Active Substance: BENZALKONIUM CHLORIDE\CHLORHEXIDINE HYDROCHLORIDE\ISOPROPYL MYRISTATE\PARAFFIN
     Dosage: UNK (APPLY TO SKIN OR USE AS A SOAP SUBSTITUTE)
     Route: 048
  13. TRESIBA [Concomitant]
     Active Substance: INSULIN DEGLUDEC
     Dosage: UNK, PM (200 UNITS/ML SOLUTION FOR INJECTION 3 ML PRE-FILLED PENS, ACCORDING TO REQUIREMENTS - 8 UNITS ON - USUALLY 10PM)
  14. INSULIN ASPART [Concomitant]
     Active Substance: INSULIN ASPART
     Dosage: UNK, TID (100 UNITS/ML, 3 ML PRE-FILLED SOLOSTAR PENS, ACCORDING TO REQUIREMENTS-2 UNITS OM, 2 UNITS, AT LUNCH, 2 UNITS AT TEATIME ON TTO)
  15. FAMOTIDINE [Concomitant]
     Active Substance: FAMOTIDINE
     Dosage: 1 DOSAGE FORM, BID (20 MG TABLETS ONE TO BE TAKEN TWICE A DAY)
  16. ENSURE [Concomitant]
     Active Substance: AMINO ACIDS\DEXTROSE\ELECTROLYTES NOS\SOYBEAN OIL\VITAMINS
     Dosage: UNK, TID (MILKSHAKE STYLE LIQUID STRAWBERRY, TAKE THE CONTENTS OF ONE BOTTLE THREE TIMES A DAY)
  17. SENNA [Concomitant]
     Active Substance: SENNOSIDES
     Dosage: 2 DOSAGE FORM, PM (7.5 MG TABLETS TAKE TWO TABLETS AT NIGHT)
  18. SODIUM BICARBONATE [Concomitant]
     Active Substance: SODIUM BICARBONATE
     Dosage: 1 DOSAGE FORM, BID (500 MG CAPSULES ONE CAPSULE TO BE TAKEN TWICE A DAY)
  19. ACETAMINOPHEN [Concomitant]
     Active Substance: ACETAMINOPHEN
     Dosage: UNK
  20. FEXOFENADINE [Concomitant]
     Active Substance: FEXOFENADINE HYDROCHLORIDE
     Dosage: 1 DOSAGE FORM, QD (180 MG TABLETS ONE TO BE TAKEN EACH DAY)
  21. DOCUSATE [Concomitant]
     Active Substance: DOCUSATE
     Dosage: 2 DOSAGE FORM, BID (100 MG CAPSULES TWO TABLETS TWICE A DAY)
  22. AZELASTINE [Concomitant]
     Active Substance: AZELASTINE
     Dosage: UNK, BID (ONE SPRAY TO BE USED IN EACH NOSTRIL TWICE A DAY 1 X 120 DOSE)
  23. LEVETIRACETAM [Concomitant]
     Active Substance: LEVETIRACETAM
     Dosage: 1 DOSAGE FORM, BID (500 MG TABLETS ONE TO BE TAKEN TWICE A DAY)

REACTIONS (2)
  - Swelling face [Unknown]
  - Oedema peripheral [Unknown]
